FAERS Safety Report 14868687 (Version 2)
Quarter: 2018Q4

REPORT INFORMATION
  Report Type: Spontaneous
  Country: US (occurrence: US)
  Receive Date: 20180509
  Receipt Date: 20181122
  Transmission Date: 20190204
  Serious: No
  Sender: FDA-Public Use
  Company Number: US-PFIZER INC-2017541318

PATIENT
  Age: 65 Year
  Sex: Female

DRUGS (8)
  1. LISINOPRIL. [Concomitant]
     Active Substance: LISINOPRIL
  2. DOCETAXEL. [Suspect]
     Active Substance: DOCETAXEL
     Indication: BREAST CANCER
     Dosage: UNK UNK, CYCLIC (EVERY THREE WEEKS)
     Dates: start: 20110726, end: 20111108
  3. ARIMIDEX [Concomitant]
     Active Substance: ANASTROZOLE
  4. NEOSAR [Concomitant]
     Active Substance: CYCLOPHOSPHAMIDE
     Indication: BREAST CANCER
  5. CYTOXAN [Concomitant]
     Active Substance: CYCLOPHOSPHAMIDE
  6. ASPIRIN. [Concomitant]
     Active Substance: ASPIRIN
  7. AMBIEN [Concomitant]
     Active Substance: ZOLPIDEM TARTRATE
  8. TAXOTERE [Suspect]
     Active Substance: DOCETAXEL
     Indication: BREAST CANCER

REACTIONS (5)
  - Hair disorder [Not Recovered/Not Resolved]
  - Hair colour changes [Not Recovered/Not Resolved]
  - Alopecia [Not Recovered/Not Resolved]
  - Hair texture abnormal [Not Recovered/Not Resolved]
  - Madarosis [Not Recovered/Not Resolved]

NARRATIVE: CASE EVENT DATE: 20120508
